FAERS Safety Report 10576045 (Version 1)
Quarter: 2014Q4

REPORT INFORMATION
  Report Type: Spontaneous
  Country: US (occurrence: None)
  Receive Date: 20141110
  Receipt Date: 20141110
  Transmission Date: 20150529
  Serious: Yes (Other)
  Sender: FDA-Public Use
  Company Number: None

PATIENT
  Age: 68 Year
  Sex: Male
  Weight: 77.11 kg

DRUGS (1)
  1. LYRICA [Suspect]
     Active Substance: PREGABALIN
     Indication: NEUROPATHY PERIPHERAL
     Dosage: 3 PILLS THREE TIMES DAILY TAKEN BY MOUTH
     Dates: start: 20141014, end: 20141021

REACTIONS (10)
  - Pain [None]
  - Confusional state [None]
  - Mental disorder [None]
  - Vision blurred [None]
  - Depression [None]
  - Dry mouth [None]
  - Balance disorder [None]
  - Dizziness [None]
  - Somnolence [None]
  - Affective disorder [None]

NARRATIVE: CASE EVENT DATE: 20141014
